FAERS Safety Report 5152121-6 (Version None)
Quarter: 2006Q4

REPORT INFORMATION
  Report Type: 
  Country: None (occurrence: None)
  Receive Date: 20061113
  Receipt Date: 20061113
  Transmission Date: 20070319
  Serious: Yes (Other)
  Sender: FDA-Public Use
  Company Number: None

PATIENT
  Age: 67 Year
  Sex: Male

DRUGS (3)
  1. GLIPIZIDE XL 5MG GREENSTONE [Suspect]
     Indication: DIABETES MELLITUS
     Dosage: TAKE ONE TABLET EVERY MORNING
     Dates: start: 20061025, end: 20061030
  2. METFORMIN [Concomitant]
  3. ACTOS [Concomitant]

REACTIONS (2)
  - BLOOD GLUCOSE DECREASED [None]
  - PHARMACEUTICAL PRODUCT COMPLAINT [None]
